FAERS Safety Report 7399272-3 (Version None)
Quarter: 2011Q1

REPORT INFORMATION
  Report Type: 
  Country: None (occurrence: None)
  Receive Date: 20110323
  Receipt Date: 20110315
  Transmission Date: 20110831
  Serious: Yes (Death)
  Sender: FDA-Public Use
  Company Number: THYM-1001347

PATIENT
  Age: 27 Year
  Sex: Female
  Weight: 100 kg

DRUGS (21)
  1. THYMOGLOBULIN [Suspect]
     Indication: BONE MARROW CONDITIONING REGIMEN
     Dosage: 90 MG, QD, INTRAVENOUS
     Route: 042
     Dates: start: 20091113, end: 20091114
  2. METHYLPREDNISOLONE [Concomitant]
  3. CHLORPHENIRAMINE MALEATE (CHLORPHENIRAMINE MALEATE) [Concomitant]
  4. VANCOMYCIN HYDROCHLORIDE [Concomitant]
  5. GRANISETRON HYDROCHLORIDE (GRANISETRON HYDROCHLORIDE) [Concomitant]
  6. PAZUFLOXACIN (PAZUFLOXACIN) [Concomitant]
  7. CYCLOSPORINE [Concomitant]
  8. METOCLOPRAMIDE [Concomitant]
  9. ACYCLOVIR [Concomitant]
  10. HYDROCORTISONE SODIUM PHOSPHATE (HYDROCORTISONE SODIUM PHOSPHATE) [Concomitant]
  11. PROCHLORPERAZINE MALEATE [Concomitant]
  12. FLUDARABINE PHOSPHATE [Concomitant]
  13. CYCLOPHOSPHAMIDE [Concomitant]
  14. METHOTREXATE [Concomitant]
  15. FUROSEMIDE [Concomitant]
  16. MICAFUNGIN SODIUM (MICAFUNGIN SODIUM) [Concomitant]
  17. SODIUM BICARBONATE IN PLASTIC CONTAINER [Concomitant]
  18. MESNA [Concomitant]
  19. PENTAZOCINE (PENTAZOCINE) [Concomitant]
  20. TEICOPLANIN (TEICOPLANIN) [Concomitant]
  21. VORICONAZOLE [Concomitant]

REACTIONS (9)
  - RENAL FAILURE [None]
  - DEPRESSED LEVEL OF CONSCIOUSNESS [None]
  - HYPERAMMONAEMIA [None]
  - SOMNOLENCE [None]
  - CONTINUOUS HAEMODIAFILTRATION [None]
  - GRAND MAL CONVULSION [None]
  - STATUS EPILEPTICUS [None]
  - HEPATIC FAILURE [None]
  - RESPIRATORY ARREST [None]
